FAERS Safety Report 19995840 (Version 4)
Quarter: 2025Q3

REPORT INFORMATION
  Report Type: Spontaneous
  Country: US (occurrence: None)
  Receive Date: 20211025
  Receipt Date: 20250722
  Transmission Date: 20251021
  Serious: No
  Sender: INCYTE
  Company Number: US-INCYTE CORPORATION-2021IN009490

PATIENT
  Age: 72 Year

DRUGS (4)
  1. JAKAFI [Suspect]
     Active Substance: RUXOLITINIB
     Indication: Polycythaemia vera
     Dosage: 20 MILLIGRAM, BID
  2. JAKAFI [Suspect]
     Active Substance: RUXOLITINIB
  3. JAKAFI [Suspect]
     Active Substance: RUXOLITINIB
     Dosage: 5 MILLIGRAM, BID (TAKE 3 TABLETS BY MOUTH 2 TIMES DAY, ALTERNATING WITH TABLETS 2 TIMES DAY)
  4. LYRICA [Suspect]
     Active Substance: PREGABALIN
     Route: 065

REACTIONS (8)
  - Fatigue [Not Recovered/Not Resolved]
  - Onychomadesis [Not Recovered/Not Resolved]
  - Laboratory test abnormal [Not Recovered/Not Resolved]
  - Constipation [Not Recovered/Not Resolved]
  - Weight increased [Not Recovered/Not Resolved]
  - Contusion [Not Recovered/Not Resolved]
  - Anaemia [Unknown]
  - Condition aggravated [Unknown]
